FAERS Safety Report 4341392-1 (Version None)
Quarter: 2004Q2

REPORT INFORMATION
  Report Type: 
  Country: None (occurrence: None)
  Receive Date: 20040413
  Receipt Date: 20040330
  Transmission Date: 20050107
  Serious: No
  Sender: FDA-Public Use
  Company Number: 02100-JPN-04-0065

PATIENT
  Age: 37 Year
  Sex: Male

DRUGS (10)
  1. CILOSTAZOL [Suspect]
     Indication: CEREBRAL INFARCTION
     Dosage: 200 MG ORAL
     Route: 048
     Dates: start: 20031219, end: 20040318
  2. AMLODIPINE BESYLATE [Suspect]
     Indication: HYPERTENSION
     Dosage: 5 MG ORAL
     Route: 048
     Dates: start: 20040219, end: 20040318
  3. CANDESARTAN CILEXETIL [Suspect]
     Indication: HYPERTENSION
     Dosage: 8 MG/12 MG ORAL
     Route: 048
     Dates: start: 20040302, end: 20040101
  4. CANDESARTAN CILEXETIL [Suspect]
     Indication: HYPERTENSION
     Dosage: 8 MG/12 MG ORAL
     Route: 048
     Dates: start: 20040101, end: 20040318
  5. INSULIN [Concomitant]
  6. ACARBOSE [Concomitant]
  7. LACTOBACILLUS BIFIDUS, LYOPHILIZED [Concomitant]
  8. CEFACLOR [Concomitant]
  9. DOXAZOSIN MESYLATE [Concomitant]
  10. GLYBURIDE [Concomitant]

REACTIONS (3)
  - BACTERIAL INFECTION [None]
  - GRANULOCYTOPENIA [None]
  - WHITE BLOOD CELL COUNT DECREASED [None]
